FAERS Safety Report 4804030-7 (Version None)
Quarter: 2005Q4

REPORT INFORMATION
  Report Type: 
  Country: None (occurrence: None)
  Receive Date: 20051018
  Receipt Date: 20051018
  Transmission Date: 20060501
  Serious: Yes (Other)
  Sender: FDA-Public Use
  Company Number: None

PATIENT
  Age: 66 Year
  Sex: Female
  Weight: 73 kg

DRUGS (2)
  1. HYDROCORTISONE [Suspect]
     Indication: RHEUMATOID ARTHRITIS
     Dosage: 50 MG IV Q 6H
     Route: 042
     Dates: start: 20051005, end: 20051007
  2. HYDROCORTISONE [Suspect]
     Indication: SEPSIS
     Dosage: 50 MG IV Q 6H
     Route: 042
     Dates: start: 20051005, end: 20051007

REACTIONS (3)
  - BLOOD POTASSIUM DECREASED [None]
  - RHEUMATOID ARTHRITIS [None]
  - UROSEPSIS [None]
